FAERS Safety Report 4658710-7 (Version None)
Quarter: 2005Q2

REPORT INFORMATION
  Report Type: 
  Country: None (occurrence: None)
  Receive Date: 20050509
  Receipt Date: 20050421
  Transmission Date: 20051028
  Serious: Yes (Other)
  Sender: FDA-Public Use
  Company Number: L05-USA-01643-01

PATIENT
  Age: 59 Year
  Sex: Male

DRUGS (1)
  1. DILTIAZEM [Suspect]
     Indication: MYOCARDIAL ISCHAEMIA

REACTIONS (1)
  - ELECTROMYOGRAM ABNORMAL [None]
